FAERS Safety Report 19974058 (Version 1)
Quarter: 2021Q4

REPORT INFORMATION
  Report Type: Spontaneous
  Country: US (occurrence: US)
  Receive Date: 20211020
  Receipt Date: 20211020
  Transmission Date: 20220303
  Serious: Yes (Death)
  Sender: FDA-Public Use
  Company Number: None

PATIENT
  Age: 9 Year
  Sex: Male

DRUGS (6)
  1. EPIDIOLEX [Suspect]
     Active Substance: CANNABIDIOL
     Indication: Seizure
     Route: 048
     Dates: start: 20201014, end: 20210930
  2. CUVPOSA [Concomitant]
     Active Substance: GLYCOPYRROLATE
     Dates: start: 20200213, end: 20210930
  3. OZOBAX [Concomitant]
     Active Substance: BACLOFEN
     Dates: start: 20200213, end: 20210930
  4. EPIDIOLEX [Concomitant]
     Active Substance: CANNABIDIOL
     Dates: start: 20201014, end: 20210930
  5. SILACE [Concomitant]
     Active Substance: DOCUSATE SODIUM
     Dates: start: 20210326, end: 20210930
  6. LANSOPRAZOLE [Concomitant]
     Active Substance: LANSOPRAZOLE
     Dates: start: 20201014, end: 20210930

REACTIONS (1)
  - Death [None]

NARRATIVE: CASE EVENT DATE: 20210930
